FAERS Safety Report 4923206-1 (Version None)
Quarter: 2006Q1

REPORT INFORMATION
  Report Type: 
  Country: None (occurrence: None)
  Receive Date: 20060127
  Receipt Date: 20051017
  Transmission Date: 20060701
  Serious: Yes (Other)
  Sender: FDA-Public Use
  Company Number: 2005133085

PATIENT
  Age: 55 Year
  Sex: Female
  Weight: 56.246 kg

DRUGS (6)
  1. LYRICA [Suspect]
     Indication: ANXIETY
     Dosage: 600 MG (200 MG, 3 IN 1 D), ORAL
     Route: 048
     Dates: start: 20050913, end: 20051001
  2. LYRICA [Suspect]
     Indication: DEPRESSION
     Dosage: 600 MG (200 MG, 3 IN 1 D), ORAL
     Route: 048
     Dates: start: 20050913, end: 20051001
  3. FOSAMAX [Concomitant]
  4. ALORA [Concomitant]
  5. XANAX [Concomitant]
  6. TRAZODONE HCL [Concomitant]

REACTIONS (6)
  - COGNITIVE DISORDER [None]
  - CONFUSIONAL STATE [None]
  - DIZZINESS [None]
  - FEELING ABNORMAL [None]
  - FEELING DRUNK [None]
  - SOMNOLENCE [None]
